FAERS Safety Report 22342579 (Version 1)
Quarter: 2023Q2

REPORT INFORMATION
  Report Type: Report from Study
  Country: US (occurrence: None)
  Receive Date: 20230519
  Receipt Date: 20230519
  Transmission Date: 20230721
  Serious: Yes (Other)
  Sender: FDA-Public Use
  Company Number: US-ROCHE-3349268

PATIENT

DRUGS (8)
  1. RITUXIMAB [Suspect]
     Active Substance: RITUXIMAB
     Indication: Burkitt^s lymphoma
     Dosage: SUBSEQUENT DOSE OF RITUXIMAB RECEIVED ON 29/JUL/2013, 19/AUG/2013, 08/SEP/2013, 30/SEP/2013, 21/OCT/
     Route: 041
     Dates: start: 20130711, end: 20130711
  2. FILGRASTIM [Suspect]
     Active Substance: FILGRASTIM
     Indication: Burkitt^s lymphoma
     Dosage: SUBSEQUENT DOSE OF FILGRASTIM RECEIVED ON  03/AUG/2013, 24/AUG/2013, 14/SEP/2013, 05/OCT/2013, 26/OC
     Route: 065
     Dates: start: 20130716
  3. VINCRISTINE [Suspect]
     Active Substance: VINCRISTINE
     Indication: Burkitt^s lymphoma
     Dosage: SUBSEQUENT DOSES OF VINCRISTINE RECEIVED ON 29/JUL//2013, 19/AUG/2013, 08/SEP/2013, 30/SEP/2013
     Route: 065
     Dates: start: 20130711
  4. CYCLOPHOSPHAMIDE [Suspect]
     Active Substance: CYCLOPHOSPHAMIDE
     Indication: Burkitt^s lymphoma
     Dosage: SUBSEQUENT DOSES OF CYCLOPHOSPHAMIDE WAS RECEIVED ON 02/AUG/2013, 23/AUG/2013(900 MG/M2), 12/SEP/201
     Route: 065
     Dates: start: 20130716
  5. DOXORUBICIN [Suspect]
     Active Substance: DOXORUBICIN
     Indication: Burkitt^s lymphoma
     Dosage: SUBSEQUENT DOSES OF DOXORUBICIN WAS RECEIVED ON 29/JUL/2013 (10 MG/M2),   19/AUG/2013 (12 MG/M2), 08
     Route: 065
     Dates: start: 20130715
  6. ETOPOSIDE [Suspect]
     Active Substance: ETOPOSIDE
     Indication: Burkitt^s lymphoma
     Dosage: SUBSEQUENT DOSES OF ETOPOSIDE WAS RECEIVED ON   29/JUL/2013 (50 MG/M2), 19/AUG/2013 (60 MG/M2), 08/S
     Route: 065
     Dates: start: 20130711
  7. PREDNISONE [Suspect]
     Active Substance: PREDNISONE
     Indication: Burkitt^s lymphoma
     Dosage: SUBSEUENT DOSE OF PREDNISONE WAS RECEIVED ON 29/JUL/2013,19/AUG/2013, 08/SEP/2013, 30/SEP/2013, 21/O
     Route: 065
     Dates: start: 20130711
  8. METHOTREXATE [Suspect]
     Active Substance: METHOTREXATE
     Indication: Burkitt^s lymphoma
     Dosage: SUBSEQUENT DOSES OF METHOTREXATE WAS RECEIVED ON 20/AUG/2013, 09/SEP/2013, 11/SEP/2013, 01/OCT/2013,
     Route: 065
     Dates: start: 20130822

REACTIONS (5)
  - Febrile neutropenia [Recovered/Resolved]
  - Anaemia [Recovered/Resolved]
  - Lymphocyte count decreased [Recovered/Resolved]
  - Neutrophil count decreased [Recovered/Resolved]
  - Hyperglycaemia [Not Recovered/Not Resolved]

NARRATIVE: CASE EVENT DATE: 20130711
